FAERS Safety Report 11232017 (Version 1)
Quarter: 2015Q2

REPORT INFORMATION
  Report Type: Spontaneous
  Country: None (occurrence: None)
  Receive Date: 20150616
  Receipt Date: 20150616
  Transmission Date: 20150821
  Serious: Yes (Other)
  Sender: FDA-Public Use
  Company Number: 1393392

PATIENT
  Age: 46 Year
  Sex: Female

DRUGS (10)
  1. HYDROCORTISONE. [Concomitant]
     Active Substance: HYDROCORTISONE
  2. CLONAZEPAM. [Concomitant]
     Active Substance: CLONAZEPAM
  3. REMERON [Concomitant]
     Active Substance: MIRTAZAPINE
  4. NEURONTIN [Concomitant]
     Active Substance: GABAPENTIN
  5. AMITRIPTYLINE [Concomitant]
     Active Substance: AMITRIPTYLINE
  6. ATIVAN [Concomitant]
     Active Substance: LORAZEPAM
  7. PRILOSEC (OMEPRAZOLE) [Concomitant]
     Active Substance: OMEPRAZOLE MAGNESIUM
  8. HYDROCHLOROTHIAZIDE. [Suspect]
     Active Substance: HYDROCHLOROTHIAZIDE
  9. ACTEMRA [Suspect]
     Active Substance: TOCILIZUMAB
     Indication: RHEUMATOID ARTHRITIS
     Route: 058
     Dates: start: 20140409
  10. FLEXERIL [Concomitant]
     Active Substance: CYCLOBENZAPRINE HYDROCHLORIDE

REACTIONS (8)
  - Headache [None]
  - Blood glucose decreased [None]
  - Diarrhoea [None]
  - Migraine [None]
  - Hypertension [None]
  - Oedema peripheral [None]
  - Alopecia [None]
  - Nausea [None]
